FAERS Safety Report 7084721-0 (Version None)
Quarter: 2010Q4

REPORT INFORMATION
  Report Type: 
  Country: None (occurrence: None)
  Receive Date: 20101104
  Receipt Date: 20101029
  Transmission Date: 20110411
  Serious: Yes (Death)
  Sender: FDA-Public Use
  Company Number: US-GILEAD-2010-0033088

PATIENT
  Sex: Female

DRUGS (8)
  1. LETAIRIS [Suspect]
     Indication: PULMONARY ARTERIAL HYPERTENSION
     Route: 048
     Dates: start: 20090122, end: 20101016
  2. REMODULIN [Concomitant]
  3. VIAGRA [Concomitant]
  4. WARFARIN SODIUM [Concomitant]
  5. SPIRONOLACTONE [Concomitant]
  6. METOPROLOL [Concomitant]
  7. DIGOXIN [Concomitant]
  8. GLYBURIDE [Concomitant]

REACTIONS (1)
  - DEATH [None]
